FAERS Safety Report 10212887 (Version 2)
Quarter: 2014Q3

REPORT INFORMATION
  Report Type: Spontaneous
  Country: US (occurrence: US)
  Receive Date: 20140602
  Receipt Date: 20140728
  Transmission Date: 20150326
  Serious: Yes (Hospitalization)
  Sender: FDA-Public Use
  Company Number: US-AMGEN-USASP2014040224

PATIENT
  Age: 58 Year
  Sex: Female
  Weight: 82.09 kg

DRUGS (13)
  1. TRAMADOL HCL [Concomitant]
     Active Substance: TRAMADOL HYDROCHLORIDE
     Indication: PAIN
     Dosage: 50 MG, FOUR TIMES DAILY, AS NEEDED
     Route: 048
     Dates: start: 20140627
  2. CALTRATE WITH VITAMIN D [Concomitant]
     Active Substance: CALCIUM CARBONATE\VITAMIN D
     Dosage: 600-400 MG, BID
  3. VALSARTAN AND HYDROCHLOROTHIAZIDE [Concomitant]
     Active Substance: HYDROCHLOROTHIAZIDE\VALSARTAN
     Dosage: 320-25 MG, QD
     Route: 048
  4. ZYRTEC ALLERGY [Concomitant]
     Dosage: 10 MG, BID
  5. HYDROXYZINE HCL [Concomitant]
     Active Substance: HYDROXYZINE HYDROCHLORIDE
     Dosage: 10 MG, 3 TABLET AT BEDTIME
  6. ENBREL [Suspect]
     Active Substance: ETANERCEPT
     Indication: RHEUMATOID ARTHRITIS
     Dosage: 50 MG, QWK
     Route: 058
     Dates: start: 200906
  7. CLOBETA                            /00337102/ [Concomitant]
     Dosage: 0.05 + 2.3% KIT, KIT USE AS DIRECTED, UNK
  8. METFORMIN HCL [Concomitant]
     Active Substance: METFORMIN HYDROCHLORIDE
     Dosage: 500 MG, 4 DAILY
  9. PERMETHRIN. [Concomitant]
     Active Substance: PERMETHRIN
     Dosage: 5 %, UNK
  10. GABAPENTINE [Concomitant]
     Active Substance: GABAPENTIN
     Dosage: 300 MG, TID
     Route: 048
     Dates: start: 20140402
  11. KLOR-CON [Concomitant]
     Active Substance: POTASSIUM CHLORIDE
     Dosage: 10 MEQ, QD
  12. VITAMIN B12 [Concomitant]
     Active Substance: CYANOCOBALAMIN
     Dosage: 100 MCG, QD
     Route: 048
  13. INH [Concomitant]
     Active Substance: ISONIAZID
     Indication: TUBERCULIN TEST POSITIVE
     Dosage: UNK
     Dates: end: 200912

REACTIONS (10)
  - Joint stiffness [Unknown]
  - Anxiety [Unknown]
  - Grip strength decreased [Unknown]
  - Infected bites [Recovered/Resolved]
  - Mobility decreased [Unknown]
  - Cellulitis [Unknown]
  - Insomnia [Unknown]
  - Pain [Unknown]
  - Depression [Unknown]
  - Arthropod bite [Recovered/Resolved]
